FAERS Safety Report 24812245 (Version 2)
Quarter: 2025Q2

REPORT INFORMATION
  Report Type: Spontaneous
  Country: US (occurrence: US)
  Receive Date: 20250106
  Receipt Date: 20250402
  Transmission Date: 20250716
  Serious: No
  Sender: ORPHAZYME
  Company Number: US-ZEVRA DENMARK A/S-ORP-000520

PATIENT
  Sex: Male

DRUGS (2)
  1. MIPLYFFA [Suspect]
     Active Substance: ARIMOCLOMOL CITRATE
     Indication: Product used for unknown indication
     Dosage: 93 MILLIGRAM, TID
     Route: 048
  2. MIPLYFFA [Suspect]
     Active Substance: ARIMOCLOMOL CITRATE
     Dosage: 62 MILLIGRAM, TID

REACTIONS (1)
  - Fatigue [Unknown]

NARRATIVE: CASE EVENT DATE: 20240101
